FAERS Safety Report 9281845 (Version 4)
Quarter: 2016Q1

REPORT INFORMATION
  Report Type: Report from Study
  Country: BR (occurrence: BR)
  Receive Date: 20130510
  Receipt Date: 20160201
  Transmission Date: 20160526
  Serious: Yes (Hospitalization, Other)
  Sender: FDA-Public Use
  Company Number: BR-ROCHE-1222485

PATIENT
  Sex: Female
  Weight: 50 kg

DRUGS (10)
  1. XOLAIR [Suspect]
     Active Substance: OMALIZUMAB
     Indication: ASTHMA
     Dosage: AMPOULES
     Route: 065
     Dates: start: 20111219
  2. BEROTEC [Concomitant]
     Active Substance: FENOTEROL HYDROBROMIDE
     Route: 065
  3. INSULIN [Concomitant]
     Active Substance: INSULIN NOS
     Route: 065
  4. AEROLIN [Concomitant]
     Active Substance: ALBUTEROL
     Route: 065
  5. PRELONE [Concomitant]
     Active Substance: PREDNISOLONE
     Route: 065
     Dates: start: 2010, end: 2012
  6. XOLAIR [Suspect]
     Active Substance: OMALIZUMAB
     Route: 058
  7. XOLAIR [Suspect]
     Active Substance: OMALIZUMAB
     Route: 058
     Dates: start: 20160112
  8. PRELONE [Concomitant]
     Active Substance: PREDNISOLONE
     Route: 065
     Dates: start: 201107
  9. SERETIDE [Concomitant]
     Active Substance: FLUTICASONE FUROATE\SALMETEROL XINAFOATE
     Route: 065
     Dates: start: 201107
  10. SERETIDE [Concomitant]
     Active Substance: FLUTICASONE FUROATE\SALMETEROL XINAFOATE
     Route: 065
     Dates: start: 201008

REACTIONS (18)
  - Myalgia [Unknown]
  - Asthma [Recovering/Resolving]
  - Blood glucose abnormal [Recovering/Resolving]
  - Weight decreased [Unknown]
  - Anosmia [Recovered/Resolved]
  - Dyspnoea [Recovered/Resolved]
  - Lack of spontaneous speech [Recovering/Resolving]
  - Muscle contracture [Unknown]
  - Feeling abnormal [Unknown]
  - Body temperature decreased [Recovered/Resolved]
  - Cyanosis [Recovering/Resolving]
  - Abdominal distension [Recovered/Resolved]
  - Sciatica [Unknown]
  - Gait disturbance [Recovering/Resolving]
  - Loss of consciousness [Unknown]
  - Musculoskeletal pain [Unknown]
  - Fatigue [Unknown]
  - Drug ineffective [Unknown]
